FAERS Safety Report 5098213-1 (Version None)
Quarter: 2006Q3

REPORT INFORMATION
  Report Type: 
  Country: None (occurrence: None)
  Receive Date: 20060906
  Receipt Date: 20060605
  Transmission Date: 20061208
  Serious: Yes (Hospitalization, Other)
  Sender: FDA-Public Use
  Company Number: US-GLAXOSMITHKLINE-A0607920A

PATIENT
  Age: 59 Year
  Sex: Female

DRUGS (5)
  1. REQUIP [Suspect]
     Indication: RESTLESS LEGS SYNDROME
     Route: 048
  2. DETROL [Concomitant]
  3. EVISTA [Concomitant]
  4. COGENTIN [Concomitant]
  5. ELDEPRYL [Concomitant]

REACTIONS (1)
  - THROMBOCYTOPENIA [None]
